FAERS Safety Report 13195843 (Version 5)
Quarter: 2017Q4

REPORT INFORMATION
  Report Type: Report from Study
  Country: US (occurrence: US)
  Receive Date: 20170208
  Receipt Date: 20171130
  Transmission Date: 20180320
  Serious: Yes (Hospitalization)
  Sender: FDA-Public Use
  Company Number: US-HORIZON-HPN-100-014-0004-2017

PATIENT
  Age: 11 Month
  Sex: Female

DRUGS (2)
  1. SODIUM PHENYLBUTYRATE. [Suspect]
     Active Substance: SODIUM PHENYLBUTYRATE
     Indication: ARGININOSUCCINATE SYNTHETASE DEFICIENCY
     Dosage: INCREASED TO 2000 MG QD ON 30-NOV-2016
     Route: 048
     Dates: start: 20160226
  2. ARGININE [Concomitant]
     Active Substance: ARGININE
     Indication: ARGININOSUCCINATE SYNTHETASE DEFICIENCY
     Dosage: INCREASED TO 4000 MG DAILY ON 30-NOV-2016
     Dates: start: 20160517

REACTIONS (1)
  - Hyperammonaemia [Recovered/Resolved]

NARRATIVE: CASE EVENT DATE: 20170115
